FAERS Safety Report 22912329 (Version 2)
Quarter: 2023Q4

REPORT INFORMATION
  Report Type: Spontaneous
  Country: US (occurrence: US)
  Receive Date: 20230906
  Receipt Date: 20231024
  Transmission Date: 20240110
  Serious: Yes (Other)
  Sender: FDA-Public Use
  Company Number: US-INCYTE CORPORATION-2023IN008430

PATIENT

DRUGS (1)
  1. OPZELURA [Suspect]
     Active Substance: RUXOLITINIB PHOSPHATE
     Indication: Vitiligo
     Route: 061

REACTIONS (5)
  - Neoplasm malignant [Unknown]
  - Ephelides [Unknown]
  - Product container issue [Unknown]
  - Intentional product use issue [Unknown]
  - Urinary tract infection [Unknown]
